FAERS Safety Report 4477763-2 (Version None)
Quarter: 2004Q4

REPORT INFORMATION
  Report Type: 
  Country: None (occurrence: None)
  Receive Date: 20041014
  Receipt Date: 20041006
  Transmission Date: 20050328
  Serious: No
  Sender: FDA-Public Use
  Company Number: 2004UW20898

PATIENT
  Age: 65 Year
  Sex: Female
  Weight: 76.203 kg

DRUGS (6)
  1. ARIMIDEX [Suspect]
     Indication: BREAST CANCER
     Dosage: 30 COUNT BOTTLE
     Dates: start: 20040301
  2. LOPRESSOR [Concomitant]
  3. XALATAN [Concomitant]
  4. MIACALCIN [Concomitant]
  5. XANAX [Concomitant]
  6. CALTRATE [Concomitant]

REACTIONS (3)
  - GALLBLADDER OPERATION [None]
  - OVARIAN CYST [None]
  - PAIN IN EXTREMITY [None]
